FAERS Safety Report 7891147 (Version 2)
Quarter: 2014Q3

REPORT INFORMATION
  Report Type: Spontaneous
  Country: US (occurrence: US)
  Receive Date: 20110408
  Receipt Date: 20140808
  Transmission Date: 20150326
  Serious: Yes (Death)
  Sender: FDA-Public Use
  Company Number: US-JNJFOC-20110401195

PATIENT

DRUGS (6)
  1. CYCLOPHOSPHAMIDE. [Suspect]
     Active Substance: CYCLOPHOSPHAMIDE
     Indication: DIFFUSE LARGE B-CELL LYMPHOMA
     Dosage: RECEIVED 8 CYCLES
     Route: 065
  2. RITUXIMAB [Suspect]
     Active Substance: RITUXIMAB
     Indication: DIFFUSE LARGE B-CELL LYMPHOMA
     Dosage: RECEIVED 6 CYCLES
     Route: 065
  3. PREDNISONE. [Suspect]
     Active Substance: PREDNISONE
     Indication: DIFFUSE LARGE B-CELL LYMPHOMA
     Dosage: RECEIVED 8 CYCLES
     Route: 065
  4. TOSITUMOMAB-IODINE 131 [Suspect]
     Active Substance: IODINE\TOSITUMOMAB
     Indication: DIFFUSE LARGE B-CELL LYMPHOMA
     Dosage: 65 CGY IF PLATELET COUNT BETWEEN 100 AND 150/CU.MM OR 75 CGY IF NORMAL PLATELET COUNT)
     Route: 065
  5. DOXORUBICIN [Suspect]
     Active Substance: DOXORUBICIN
     Indication: DIFFUSE LARGE B-CELL LYMPHOMA
     Dosage: RECEIVED 8 CYCLES
     Route: 042
  6. VINCRISTINE [Suspect]
     Active Substance: VINCRISTINE
     Indication: DIFFUSE LARGE B-CELL LYMPHOMA
     Dosage: RECEIVED 8 CYCLES
     Route: 065

REACTIONS (1)
  - Renal failure [Fatal]
